FAERS Safety Report 6427834-6 (Version None)
Quarter: 2009Q4

REPORT INFORMATION
  Report Type: 
  Country: None (occurrence: None)
  Receive Date: 20091104
  Receipt Date: 20091104
  Transmission Date: 20100525
  Serious: Yes (Other)
  Sender: FDA-Public Use
  Company Number: None

PATIENT
  Age: 28 Year
  Sex: Female
  Weight: 45.4 kg

DRUGS (2)
  1. VISINE EYE DROPS [Suspect]
     Indication: OCULAR HYPERAEMIA
     Dosage: 1 DROP ONCE DAILY (1 IN 1 D), OPHTHALMIC
     Route: 047
     Dates: start: 19960101, end: 20080209
  2. OPHTHALMOLOGICALS (OPHTHALMOLOGICALS) [Concomitant]

REACTIONS (10)
  - ASTIGMATISM [None]
  - DRY EYE [None]
  - EYE INJURY [None]
  - OCULAR HYPERAEMIA [None]
  - PAIN [None]
  - PHOTOPSIA [None]
  - PINGUECULA [None]
  - RETINAL TEAR [None]
  - SCLERAL DISCOLOURATION [None]
  - VITREOUS FLOATERS [None]
